FAERS Safety Report 22525965 (Version 1)
Quarter: 2023Q2

REPORT INFORMATION
  Report Type: Spontaneous
  Country: KR (occurrence: KR)
  Receive Date: 20230606
  Receipt Date: 20230606
  Transmission Date: 20230721
  Serious: Yes (Hospitalization, Other)
  Sender: FDA-Public Use
  Company Number: KR-ORGANON-O2305KOR003288

PATIENT
  Age: 50 Year
  Sex: Female
  Weight: 80 kg

DRUGS (4)
  1. COZAAR [Suspect]
     Active Substance: LOSARTAN POTASSIUM
     Indication: Essential hypertension
     Dosage: 50 MILLIGRAM, 1 DAY; FORMULATION: FILM-COATED TABLET
     Route: 048
     Dates: start: 20170915
  2. EMPAGLIFLOZIN [Suspect]
     Active Substance: EMPAGLIFLOZIN
     Indication: Type 2 diabetes mellitus
     Dosage: 10 MILLIGRAM, 1 DAY
     Route: 048
     Dates: start: 20170915, end: 20180424
  3. METFORMIN HYDROCHLORIDE [Concomitant]
     Active Substance: METFORMIN HYDROCHLORIDE
     Indication: Type 2 diabetes mellitus
     Dosage: 850 MILLIGRAM, 0.5 DAY
     Route: 048
     Dates: start: 20170915, end: 20180423
  4. GLICLAZIDE [Concomitant]
     Active Substance: GLICLAZIDE
     Indication: Type 2 diabetes mellitus
     Dosage: 60 MILLIGRAM, 0.5 DAY
     Route: 048
     Dates: start: 20170915

REACTIONS (3)
  - Uterine leiomyoma [Recovered/Resolved]
  - Spleen disorder [Recovered/Resolved]
  - Cervix disorder [Recovered/Resolved]

NARRATIVE: CASE EVENT DATE: 20171128
